FAERS Safety Report 4998706-9 (Version None)
Quarter: 2006Q2

REPORT INFORMATION
  Report Type: 
  Country: None (occurrence: None)
  Receive Date: 20060510
  Receipt Date: 20060509
  Transmission Date: 20061013
  Serious: Yes (Hospitalization)
  Sender: FDA-Public Use
  Company Number: AU-BOEHRINGER INGELHEIM PHARMACEUTICALS, INC.-2006-BP-05224AU

PATIENT
  Sex: Female
  Weight: 50 kg

DRUGS (1)
  1. SPIRIVA [Suspect]
     Dates: start: 20051118, end: 20051121

REACTIONS (1)
  - ASTHMA [None]
